FAERS Safety Report 8258169-7 (Version None)
Quarter: 2012Q2

REPORT INFORMATION
  Report Type: 
  Country: None (occurrence: None)
  Receive Date: 20120404
  Receipt Date: 20120328
  Transmission Date: 20120825
  Serious: Yes (Hospitalization)
  Sender: FDA-Public Use
  Company Number: PHHY2012LV024519

PATIENT
  Age: 92 Year
  Sex: Male

DRUGS (2)
  1. ACETYLSALICYLIC ACID SRT [Concomitant]
  2. DICLOFENAC SODIUM [Suspect]

REACTIONS (5)
  - ABDOMINAL DISTENSION [None]
  - INFECTIOUS PERITONITIS [None]
  - MYOCARDIAL INFARCTION [None]
  - ABDOMINAL PAIN UPPER [None]
  - GASTRIC ULCER PERFORATION [None]
